FAERS Safety Report 24943600 (Version 2)
Quarter: 2025Q3

REPORT INFORMATION
  Report Type: Report from Study
  Country: US (occurrence: US)
  Receive Date: 20250207
  Receipt Date: 20250810
  Transmission Date: 20251021
  Serious: Yes (Hospitalization, Congenital Anomaly)
  Sender: ALEXION PHARMACEUTICALS
  Company Number: US-AstraZeneca-CH-00797956A

PATIENT
  Sex: Female

DRUGS (1)
  1. OLAPARIB [Suspect]
     Active Substance: OLAPARIB

REACTIONS (9)
  - Illness [Unknown]
  - Feeling abnormal [Unknown]
  - Brain fog [Unknown]
  - Onychoclasis [Unknown]
  - Pruritus [Unknown]
  - Pain [Unknown]
  - Urinary tract infection [Unknown]
  - Therapeutic product effect decreased [Unknown]
  - Dry skin [Unknown]
